FAERS Safety Report 13538266 (Version 2)
Quarter: 2017Q3

REPORT INFORMATION
  Report Type: Spontaneous
  Country: US (occurrence: US)
  Receive Date: 20170512
  Receipt Date: 20170810
  Transmission Date: 20171127
  Serious: No
  Sender: FDA-Public Use
  Company Number: US-B.I. PHARMACEUTICALS,INC./RIDGEFIELD-2017-BI-025791

PATIENT
  Age: 31 Year
  Sex: Female

DRUGS (5)
  1. COMBIVENT [Suspect]
     Active Substance: ALBUTEROL SULFATE\IPRATROPIUM BROMIDE
     Indication: CHRONIC OBSTRUCTIVE PULMONARY DISEASE
     Dosage: 1 PUFF 4 TIMES A DAY AS NEEDED;  FORM STRENGTH: 20 MCG / 100 MCG; FORMULATION: INHALATION SPRAY? ADM
     Route: 055
  2. MONOPRIL [Concomitant]
     Active Substance: FOSINOPRIL SODIUM
     Indication: HEART RATE IRREGULAR
     Dosage: FORM STRENGTH: 25MG; FORMULATION: TABLET
     Route: 048
     Dates: start: 2016
  3. COLCHICINE. [Concomitant]
     Active Substance: COLCHICINE
     Indication: FAMILIAL MEDITERRANEAN FEVER
     Dosage: DAILY;  FORM STRENGTH: 0.6MG; FORMULATION: TABLET
     Route: 048
  4. INCRUSE ILIPTA [Concomitant]
     Indication: ASTHMA
     Dosage: DAILY;  FORM STRENGTH: 62.5MCG; FORMULATION: TABLET
     Route: 065
     Dates: start: 2017
  5. QNASL [Concomitant]
     Active Substance: BECLOMETHASONE DIPROPIONATE
     Indication: SEASONAL ALLERGY
     Dosage: DAILY;  FORM STRENGTH: 80MCG; FORMULATION: INHALATION AEROSOL
     Route: 055

REACTIONS (3)
  - Nasopharyngitis [Recovered/Resolved]
  - Product taste abnormal [Unknown]
  - Drug effect incomplete [Not Recovered/Not Resolved]

NARRATIVE: CASE EVENT DATE: 201704
